FAERS Safety Report 9806176 (Version 1)
Quarter: 2014Q1

REPORT INFORMATION
  Report Type: Spontaneous
  Country: GB (occurrence: None)
  Receive Date: 20140107
  Receipt Date: 20140107
  Transmission Date: 20141002
  Serious: Yes (Other)
  Sender: FDA-Public Use
  Company Number: AUR-APL-2013-10905

PATIENT
  Sex: Female

DRUGS (4)
  1. GABAPENTIN (GABAPENTIN) [Suspect]
     Indication: NEURALGIA
  2. GABAPENTIN (GABAPENTIN) [Suspect]
  3. AMITRIPTYLINE (AMITRIPTYLINE) [Concomitant]
  4. CO-CODAMOL (PANADEINE CO) [Concomitant]

REACTIONS (1)
  - Drug withdrawal syndrome [None]
